FAERS Safety Report 7507575-4 (Version None)
Quarter: 2011Q2

REPORT INFORMATION
  Report Type: 
  Country: None (occurrence: None)
  Receive Date: 20110526
  Receipt Date: 20110321
  Transmission Date: 20111010
  Serious: No
  Sender: FDA-Public Use
  Company Number: US-MYLANLABS-2011S1003059

PATIENT
  Age: 70 Year
  Sex: Male
  Weight: 83.46 kg

DRUGS (10)
  1. ROPINIROLE HYDROCHLORIDE [Suspect]
     Route: 048
     Dates: start: 20090629
  2. BACLOFEN [Concomitant]
  3. CALCIUM +D /00188401/ [Concomitant]
  4. CITALOPRAM HYDROBROMIDE [Concomitant]
  5. ROPINIROLE HYDROCHLORIDE [Suspect]
     Route: 048
  6. RASAGILINE [Concomitant]
  7. ROPINIROLE HYDROCHLORIDE [Suspect]
     Route: 048
     Dates: start: 20090629
  8. ROPINIROLE HYDROCHLORIDE [Suspect]
     Indication: PARKINSON'S DISEASE
     Route: 048
     Dates: start: 20090629
  9. ROPINIROLE HYDROCHLORIDE [Suspect]
     Route: 048
     Dates: end: 20110201
  10. IBUPROFEN [Concomitant]

REACTIONS (4)
  - GAIT DISTURBANCE [None]
  - DRUG INEFFECTIVE [None]
  - BRADYPHRENIA [None]
  - MUSCULOSKELETAL STIFFNESS [None]
